FAERS Safety Report 8437802-0 (Version None)
Quarter: 2012Q2

REPORT INFORMATION
  Report Type: 
  Country: None (occurrence: None)
  Receive Date: 20120614
  Receipt Date: 20120510
  Transmission Date: 20120825
  Serious: No
  Sender: FDA-Public Use
  Company Number: US-AMGEN-USASP2012030098

PATIENT
  Age: 80 Year
  Sex: Female

DRUGS (9)
  1. PROLIA [Suspect]
     Indication: OSTEOPOROSIS
     Dosage: UNK
     Dates: start: 20120402
  2. DETROL [Concomitant]
     Dosage: UNK
  3. CALCIUM [Concomitant]
     Dosage: UNK
  4. ASPIRIN [Concomitant]
     Dosage: 1 MG, UNK
  5. MULTIVITAMIN                       /00097801/ [Concomitant]
     Dosage: UNK
  6. TOPROL-XL [Concomitant]
     Dosage: UNK
  7. ZOLOFT [Concomitant]
     Dosage: UNK
  8. CYMBALTA [Concomitant]
  9. BENICAR [Concomitant]
     Dosage: UNK

REACTIONS (3)
  - JOINT CREPITATION [None]
  - CANDIDIASIS [None]
  - HEADACHE [None]
